FAERS Safety Report 6546501-1 (Version None)
Quarter: 2010Q1

REPORT INFORMATION
  Report Type: 
  Country: None (occurrence: None)
  Receive Date: 20100114
  Receipt Date: 20091104
  Transmission Date: 20100710
  Serious: No
  Sender: FDA-Public Use
  Company Number: 2009BM000297

PATIENT
  Age: 10 Year
  Sex: Male
  Weight: 38 kg

DRUGS (1)
  1. KUVAN [Suspect]
     Indication: PHENYLKETONURIA
     Dosage: 800 MG;QD;PO
     Route: 048

REACTIONS (2)
  - H1N1 INFLUENZA [None]
  - STAPHYLOCOCCAL INFECTION [None]
